FAERS Safety Report 7843450-3 (Version None)
Quarter: 2011Q4

REPORT INFORMATION
  Report Type: 
  Country: None (occurrence: None)
  Receive Date: 20111025
  Receipt Date: 20111014
  Transmission Date: 20120403
  Serious: Yes (Other)
  Sender: FDA-Public Use
  Company Number: FR-ROCHE-779522

PATIENT
  Sex: Female
  Weight: 71 kg

DRUGS (19)
  1. ACETAMINOPHEN [Concomitant]
     Indication: RHEUMATOID ARTHRITIS
     Route: 048
  2. BISOPROLOL FUMARATE [Concomitant]
     Indication: HYPERTENSION
     Dosage: STRENGTH REPORTED AS 2.5,
     Route: 048
  3. LOGIRENE [Concomitant]
     Indication: HYPERTENSION
     Dosage: DOSE REPORTED AS 1.5 TABLETS DAILY
     Route: 048
  4. LORAZEPAM [Concomitant]
     Dosage: STRENGTH:2.5
  5. DIOSMIN [Concomitant]
  6. NEXIUM [Concomitant]
  7. LEVOTHYROXINE SODIUM [Concomitant]
     Indication: HYPOTHYROIDISM
  8. UVEDOSE [Concomitant]
  9. NAABAK [Concomitant]
     Dosage: FREQUENCY:3 DROPS DAILY
  10. POTASSIUM CHLORIDE [Concomitant]
     Dosage: STRENGTH:1000
  11. COLPOTROPHINE [Concomitant]
     Dosage: FREQUENCY : ONE TIME WEEKLY.
  12. TRAMADOL HCL [Concomitant]
     Dosage: STRENGHT 100 LP; FREQUNCY REPORTED 1-2 TABLET DAILY.
     Route: 048
  13. IMOVANE [Concomitant]
  14. SODIUM CHLORIDE [Concomitant]
     Dosage: 3 DROPS DAILY
  15. VOLTAREN [Concomitant]
     Dosage: ONE TABLET IN THE MORNING AND ONE IN EVENING
     Route: 048
  16. DUPHALAC [Concomitant]
     Dosage: ONE SACHET DAILY
  17. MABTHERA [Suspect]
     Indication: RHEUMATOID ARTHRITIS
     Dosage: FORM: INFUSION
     Route: 042
     Dates: start: 20110420, end: 20110504
  18. PREDNISONE [Concomitant]
     Indication: RHEUMATOID ARTHRITIS
     Route: 048
  19. OSTRAM [Concomitant]
     Dosage: STRENGTH:0.6

REACTIONS (2)
  - HYPOAESTHESIA [None]
  - PERIPHERAL SENSORIMOTOR NEUROPATHY [None]
